FAERS Safety Report 16647447 (Version 3)
Quarter: 2020Q1

REPORT INFORMATION
  Report Type: Spontaneous
  Country: RU (occurrence: RU)
  Receive Date: 20190730
  Receipt Date: 20200213
  Transmission Date: 20200409
  Serious: Yes (Death, Life-Threatening, Hospitalization, Other)
  Sender: FDA-Public Use
  Company Number: RU-CELGENEUS-RUS-20190201056

PATIENT
  Age: 75 Year
  Sex: Male
  Weight: 66 kg

DRUGS (6)
  1. ALLOPURINOL. [Concomitant]
     Active Substance: ALLOPURINOL
     Dosage: 300 MILLIGRAM
     Route: 048
     Dates: start: 20180118, end: 20180119
  2. VENETOCLAX. [Concomitant]
     Active Substance: VENETOCLAX
     Indication: ACUTE MYELOID LEUKAEMIA
     Route: 065
  3. 5% DEXTROSE IN WATER [Concomitant]
     Indication: PROPHYLAXIS
     Dosage: 3200 ML
     Route: 041
     Dates: start: 20171224, end: 20171231
  4. VIDAZA [Suspect]
     Active Substance: AZACITIDINE
     Indication: ACUTE MYELOID LEUKAEMIA
     Dosage: 75 MILLIGRAM/SQ. METER
     Route: 058
     Dates: start: 20171225, end: 20190116
  5. NORMAL SALINE SOLUTION [Concomitant]
     Indication: PROPHYLAXIS
     Dosage: 3200 MILLILITER
     Route: 041
     Dates: start: 20171224, end: 20171231
  6. ALLOPURINOL. [Concomitant]
     Active Substance: ALLOPURINOL
     Indication: PROPHYLAXIS
     Dosage: 300 MILLIGRAM
     Route: 048
     Dates: start: 20171222, end: 20180102

REACTIONS (1)
  - Gastritis haemorrhagic [Fatal]

NARRATIVE: CASE EVENT DATE: 20190131
